FAERS Safety Report 6993952-7 (Version None)
Quarter: 2010Q3

REPORT INFORMATION
  Report Type: 
  Country: None (occurrence: None)
  Receive Date: 20100917
  Receipt Date: 20100604
  Transmission Date: 20110219
  Serious: No
  Sender: FDA-Public Use
  Company Number: US-ASTRAZENECA-2010SE25980

PATIENT
  Age: 55 Year
  Sex: Female

DRUGS (6)
  1. SEROQUEL [Suspect]
     Indication: BIPOLAR DISORDER
     Route: 048
     Dates: start: 20070101, end: 20100501
  2. CLONOPIN [Concomitant]
  3. PROZAC [Concomitant]
  4. OSOTEC [Concomitant]
     Indication: ARTHRITIS
  5. CARDIZEM [Concomitant]
  6. PREMARIN [Concomitant]

REACTIONS (6)
  - ABNORMAL BEHAVIOUR [None]
  - AGGRESSION [None]
  - CRYING [None]
  - DRUG DOSE OMISSION [None]
  - INSOMNIA [None]
  - WITHDRAWAL SYNDROME [None]
